FAERS Safety Report 7220441-7 (Version None)
Quarter: 2011Q1

REPORT INFORMATION
  Report Type: 
  Country: None (occurrence: None)
  Receive Date: 20110111
  Receipt Date: 20101231
  Transmission Date: 20110831
  Serious: Yes (Hospitalization)
  Sender: FDA-Public Use
  Company Number: PHFR2010GB05851

PATIENT
  Sex: Male

DRUGS (1)
  1. GLEEVEC [Suspect]
     Indication: CHRONIC MYELOID LEUKAEMIA
     Dosage: 400 MG, UNK
     Route: 048
     Dates: start: 20091001, end: 20101208

REACTIONS (5)
  - OBSTRUCTIVE AIRWAYS DISORDER [None]
  - CARDIAC FAILURE [None]
  - DRUG RESISTANCE [None]
  - ASTHMA [None]
  - DYSPNOEA [None]
